FAERS Safety Report 12627169 (Version 1)
Quarter: 2016Q3

REPORT INFORMATION
  Report Type: Spontaneous
  Country: US (occurrence: US)
  Receive Date: 20160805
  Receipt Date: 20160805
  Transmission Date: 20161109
  Serious: Yes (Other)
  Sender: FDA-Public Use
  Company Number: US-ASTRAZENECA-2016SE82769

PATIENT
  Age: 636 Month
  Sex: Female

DRUGS (25)
  1. AROMASIN [Concomitant]
     Active Substance: EXEMESTANE
  2. ROXICODONE [Concomitant]
     Active Substance: OXYCODONE HYDROCHLORIDE
     Indication: PAIN
     Dosage: TAKE 1 TABLET (5 MG T AL) BY:MOUTH EVERY FOUR HOURS AS NEEDED
     Route: 048
  3. INFLUENZA [Concomitant]
     Active Substance: INFLUENZA VIRUS VACCINE
     Dates: start: 20160101
  4. VITAMIN D3 [Concomitant]
     Active Substance: CHOLECALCIFEROL
     Route: 048
  5. CHLOROPHYLL [Concomitant]
     Route: 048
  6. NOVOLOG [Concomitant]
     Active Substance: INSULIN ASPART
     Dosage: BEFORE EACH MEAL
  7. PNEUCOCCAL POLYSACCHARIDE [Concomitant]
     Dates: start: 20150215
  8. COMPAZINE [Concomitant]
     Active Substance: PROCHLORPERAZINE MALEATE
     Indication: NAUSEA
     Dosage: TAKE 10 MG BY MOUTH EVERY^SIX HOURS AS NEEDED
     Route: 048
  9. TAMOXIFEN [Concomitant]
     Active Substance: TAMOXIFEN
     Dosage: DAILY
     Dates: start: 20150128
  10. LISINOPRIL. [Suspect]
     Active Substance: LISINOPRIL
     Route: 048
  11. FASLODEX [Suspect]
     Active Substance: FULVESTRANT
     Indication: BREAST CANCER STAGE IV
     Route: 030
     Dates: start: 20151020
  12. IBRANCE [Suspect]
     Active Substance: PALBOCICLIB
     Route: 048
  13. FISH OIL [Concomitant]
     Active Substance: FISH OIL
     Route: 048
  14. FLEXERIL [Concomitant]
     Active Substance: CYCLOBENZAPRINE HYDROCHLORIDE
  15. EVEROLIMUS [Concomitant]
     Active Substance: EVEROLIMUS
     Route: 048
  16. THERA-M [Concomitant]
     Route: 048
  17. DELTASONE [Concomitant]
     Active Substance: PREDNISONE
     Dosage: 1 QID X 2 DAYS
     Route: 048
  18. DELTASONE [Concomitant]
     Active Substance: PREDNISONE
     Dosage: 1 TID X 2 DAYS
     Route: 048
  19. DELTASONE [Concomitant]
     Active Substance: PREDNISONE
     Dosage: 1 BID X 2 DAYS
     Route: 048
  20. ULTRAM [Concomitant]
     Active Substance: TRAMADOL HYDROCHLORIDE
     Indication: PAIN
     Dosage: TAKE 1 TABLET (50 MG OTAL) BY MOUTH EVERY SIX HOURS AS NEEDED
     Route: 048
  21. COUMADIN [Concomitant]
     Active Substance: WARFARIN SODIUM
     Dosage: TAKE BY MOUTH. 5 MG ON MON, THU; 7.5 MG ALL OTHER DAYS
     Route: 048
  22. NEURONTIN [Concomitant]
     Active Substance: GABAPENTIN
     Route: 048
  23. NEURONTIN [Concomitant]
     Active Substance: GABAPENTIN
     Route: 048
  24. LANTUS [Concomitant]
     Active Substance: INSULIN GLARGINE
     Dosage: INJECT 38 UNITS UNDER THE SKIN DAILY AT BEDTIME.
  25. COMPAZINE [Concomitant]
     Active Substance: PROCHLORPERAZINE MALEATE
     Indication: VOMITING
     Dosage: TAKE 10 MG BY MOUTH EVERY^SIX HOURS AS NEEDED
     Route: 048

REACTIONS (6)
  - Disease progression [Unknown]
  - Breast cancer [Unknown]
  - Metastases to bone [Unknown]
  - Sciatica [Unknown]
  - Asthenia [Unknown]
  - Localised infection [Unknown]

NARRATIVE: CASE EVENT DATE: 201103
